FAERS Safety Report 8870209 (Version 1)
Quarter: 2012Q4

REPORT INFORMATION
  Report Type: 
  Country: US (occurrence: US)
  Receive Date: 20121023
  Receipt Date: 20121023
  Transmission Date: 20130627
  Serious: No
  Sender: FDA-Public Use
  Company Number: US-AMGEN-USASP2012002881

PATIENT
  Age: 78 Year
  Sex: Female

DRUGS (1)
  1. ENBREL [Suspect]
     Indication: RHEUMATOID ARTHRITIS
     Dosage: 50 mg, qwk
     Dates: start: 20110715

REACTIONS (6)
  - Pain in extremity [Recovered/Resolved]
  - Musculoskeletal pain [Recovered/Resolved]
  - Muscle spasms [Not Recovered/Not Resolved]
  - Contusion [Not Recovered/Not Resolved]
  - Secretion discharge [Not Recovered/Not Resolved]
  - Fatigue [Not Recovered/Not Resolved]
